FAERS Safety Report 7632279-7 (Version None)
Quarter: 2011Q3

REPORT INFORMATION
  Report Type: 
  Country: None (occurrence: None)
  Receive Date: 20110725
  Receipt Date: 20100713
  Transmission Date: 20111222
  Serious: Yes (Hospitalization, Other)
  Sender: FDA-Public Use
  Company Number: US-BRISTOL-MYERS SQUIBB COMPANY-15191596

PATIENT
  Age: 68 Year
  Sex: Male

DRUGS (12)
  1. REVLIMID [Suspect]
     Indication: MULTIPLE MYELOMA
     Dosage: FROM 02NOV09 IO 17MAY10 195 DAYS+ 09MAR09 TO UNK; DAILY DAYS 1-21 Q 28 DAYS.
     Route: 048
     Dates: start: 20091102
  2. GABAPENTIN [Concomitant]
     Route: 065
  3. VICODIN [Concomitant]
     Route: 065
  4. MEGACE [Concomitant]
     Route: 065
  5. DECADRON [Concomitant]
     Route: 065
  6. COUMADIN [Suspect]
     Indication: ANTICOAGULANT THERAPY
     Route: 065
  7. LOVENOX [Suspect]
     Indication: ANTICOAGULANT THERAPY
     Route: 065
  8. CARVEDILOL [Concomitant]
     Route: 065
  9. FLUCONAZOLE [Concomitant]
     Route: 065
  10. DILAUDID [Concomitant]
     Route: 065
  11. ACYCLOVIR [Concomitant]
     Indication: PROPHYLAXIS
     Route: 065
  12. ASPIRIN [Concomitant]
     Route: 065

REACTIONS (1)
  - HAEMATOMA [None]
